FAERS Safety Report 14124842 (Version 1)
Quarter: 2017Q4

REPORT INFORMATION
  Report Type: Spontaneous
  Country: US (occurrence: US)
  Receive Date: 20171025
  Receipt Date: 20171025
  Transmission Date: 20180321
  Serious: No
  Sender: FDA-Public Use
  Company Number: US-PERRIGO-17US026375

PATIENT
  Age: 27 Year
  Sex: Female
  Weight: 113.38 kg

DRUGS (2)
  1. SYNTHROID [Concomitant]
     Active Substance: LEVOTHYROXINE SODIUM
     Indication: THYROID DISORDER
     Dosage: UNK
     Route: 065
  2. NICOTINE POLACRILEX [Suspect]
     Active Substance: NICOTINE
     Indication: SMOKING CESSATION THERAPY
     Dosage: 4 MG, SINGLE
     Route: 002
     Dates: start: 20170828, end: 20170828

REACTIONS (2)
  - Hyperhidrosis [Not Recovered/Not Resolved]
  - Nausea [Recovered/Resolved]

NARRATIVE: CASE EVENT DATE: 20170828
